FAERS Safety Report 9291176 (Version 2)
Quarter: 2013Q3

REPORT INFORMATION
  Report Type: Spontaneous
  Country: US (occurrence: US)
  Receive Date: 20130515
  Receipt Date: 20130730
  Transmission Date: 20140515
  Serious: Yes (Hospitalization)
  Sender: FDA-Public Use
  Company Number: US-BAYER-2013-059971

PATIENT
  Age: 25 Year
  Sex: Female
  Weight: 83.45 kg

DRUGS (7)
  1. YAZ [Suspect]
     Dosage: UNK
     Dates: start: 2006, end: 20100423
  2. XANAX [Concomitant]
     Dosage: 0.5 MG, QID
     Route: 048
  3. ABILIFY [Concomitant]
     Dosage: 2 MG, QD
     Route: 048
  4. LEXAPRO [Concomitant]
     Dosage: 10 MG, QD
     Route: 048
  5. ADDERALL [Concomitant]
     Dosage: 20 MG, TID
     Route: 048
  6. FIORICET [Concomitant]
     Dosage: UNK UNK, PRN
     Route: 048
  7. VICODIN [Concomitant]
     Dosage: 10/325 PRN
     Route: 048

REACTIONS (8)
  - Pulmonary embolism [None]
  - Pulmonary infarction [None]
  - Pain [None]
  - Injury [None]
  - General physical health deterioration [None]
  - Anxiety [None]
  - Emotional distress [None]
  - Pain [None]
